FAERS Safety Report 5285229-5 (Version None)
Quarter: 2007Q2

REPORT INFORMATION
  Report Type: 
  Country: None (occurrence: None)
  Receive Date: 20070403
  Receipt Date: 20070327
  Transmission Date: 20071010
  Serious: Yes (Other)
  Sender: FDA-Public Use
  Company Number: BR-PFIZER INC-2007022917

PATIENT
  Sex: Female
  Weight: 47 kg

DRUGS (5)
  1. FRONTAL [Suspect]
     Indication: ANXIETY
     Route: 048
  2. FRONTAL [Suspect]
     Indication: PANIC DISORDER
  3. PROPRANOLOL [Concomitant]
     Dosage: DAILY DOSE:40MG
     Route: 048
  4. LINOLEIC ACID [Concomitant]
     Route: 048
  5. ASCORBIC ACID [Concomitant]
     Route: 048

REACTIONS (3)
  - CHROMOSOME ABNORMALITY [None]
  - PAIN [None]
  - WEIGHT INCREASED [None]
